FAERS Safety Report 7523140-7 (Version None)
Quarter: 2011Q2

REPORT INFORMATION
  Report Type: 
  Country: None (occurrence: None)
  Receive Date: 20110525
  Receipt Date: 20110511
  Transmission Date: 20111010
  Serious: Yes (Life-Threatening)
  Sender: FDA-Public Use
  Company Number: 1000020992

PATIENT
  Sex: Male

DRUGS (3)
  1. PROPAVAN (PROPIOMAZINE MALEATE)(TABLETS)(PROPIOMAZINE MALEATE) [Concomitant]
  2. ESCITALOPRAM [Suspect]
     Indication: DEPRESSION
     Dosage: 20 MG (20 MG, 1 IN 1 D)
  3. STILNOCT (ZOLPIDEM TARTRATE)(TABLETS)(ZOLPIDEM TARTRATE) [Concomitant]

REACTIONS (9)
  - EMOTIONAL DISORDER [None]
  - DECREASED APPETITE [None]
  - WEIGHT DECREASED [None]
  - ANXIETY [None]
  - FEELING ABNORMAL [None]
  - AGGRESSION [None]
  - DYSGEUSIA [None]
  - SUICIDAL IDEATION [None]
  - INSOMNIA [None]
